FAERS Safety Report 23343370 (Version 2)
Quarter: 2023Q4

REPORT INFORMATION
  Report Type: Spontaneous
  Country: PT (occurrence: PT)
  Receive Date: 20231227
  Receipt Date: 20231228
  Transmission Date: 20240110
  Serious: Yes (Other)
  Sender: FDA-Public Use
  Company Number: PT-002147023-NVSC2023PT254899

PATIENT
  Age: 74 Year
  Sex: Male

DRUGS (1)
  1. PLUVICTO [Suspect]
     Active Substance: LUTETIUM LU-177 VIPIVOTIDE TETRAXETAN
     Indication: Hormone-refractory prostate cancer
     Dosage: 200 MCI, EVERY 6 WEEKS
     Route: 042
     Dates: start: 20230822, end: 20231024

REACTIONS (5)
  - Haemorrhage [Unknown]
  - Eye swelling [Unknown]
  - Fall [Unknown]
  - Condition aggravated [Unknown]
  - General physical health deterioration [Unknown]

NARRATIVE: CASE EVENT DATE: 20231101
